FAERS Safety Report 4569498-2 (Version None)
Quarter: 2005Q1

REPORT INFORMATION
  Report Type: 
  Country: None (occurrence: None)
  Receive Date: 20050201
  Receipt Date: 20050120
  Transmission Date: 20050727
  Serious: Yes (Death)
  Sender: FDA-Public Use
  Company Number: A02200500161

PATIENT
  Age: 58 Year
  Sex: Male

DRUGS (2)
  1. STILNOX - (ZOLPIDEM) - TABLET - 10 MG [Suspect]
     Indication: INTENTIONAL MISUSE
     Dosage: ORAL
     Route: 048
     Dates: start: 20040227, end: 20040227
  2. ACETAMINOPHEN [Concomitant]

REACTIONS (2)
  - ILL-DEFINED DISORDER [None]
  - INTENTIONAL MISUSE [None]
